FAERS Safety Report 8177284-X (Version None)
Quarter: 2012Q1

REPORT INFORMATION
  Report Type: 
  Country: None (occurrence: None)
  Receive Date: 20120301
  Receipt Date: 20120224
  Transmission Date: 20120608
  Serious: Yes (Hospitalization)
  Sender: FDA-Public Use
  Company Number: JP-B.I. PHARMACEUTICALS,INC./RIDGEFIELD-2012-BP-01647NB

PATIENT
  Sex: Male
  Weight: 70 kg

DRUGS (5)
  1. AMLODIPINE BESYLATE [Suspect]
     Indication: HYPERTENSION
     Dosage: 5 MG
     Route: 048
  2. SITAGLIPTIN PHOSPHATE [Concomitant]
     Dosage: 50 MG
     Route: 048
  3. CARVEDILOL [Suspect]
     Indication: HYPERTENSION
     Dosage: 2.5 MG
     Route: 048
  4. PERINDOPRIL ERBUMINE [Suspect]
     Indication: HYPERTENSION
     Dosage: 2 MG
     Route: 048
  5. PRADAXA [Suspect]
     Indication: ATRIAL FIBRILLATION
     Dosage: 220 MG
     Route: 048
     Dates: start: 20110826, end: 20120116

REACTIONS (2)
  - CEREBRAL INFARCTION [None]
  - DRUG INEFFECTIVE [None]
